FAERS Safety Report 15608755 (Version 1)
Quarter: 2018Q4

REPORT INFORMATION
  Report Type: Spontaneous
  Country: US (occurrence: US)
  Receive Date: 20181112
  Receipt Date: 20181112
  Transmission Date: 20190205
  Serious: No
  Sender: FDA-Public Use
  Company Number: US-SA-2018SA306815

PATIENT
  Sex: Female

DRUGS (1)
  1. AUBAGIO [Suspect]
     Active Substance: TERIFLUNOMIDE
     Indication: MULTIPLE SCLEROSIS
     Dosage: 14 MG, QD
     Route: 048
     Dates: start: 201810

REACTIONS (7)
  - Fatigue [Unknown]
  - Decreased appetite [Unknown]
  - Depressed mood [Unknown]
  - Fall [Unknown]
  - Musculoskeletal disorder [Unknown]
  - Headache [Unknown]
  - Alopecia [Unknown]
